FAERS Safety Report 4723526-X (Version None)
Quarter: 2005Q3

REPORT INFORMATION
  Report Type: 
  Country: None (occurrence: None)
  Receive Date: 20050725
  Receipt Date: 20050713
  Transmission Date: 20060218
  Serious: Yes (Death)
  Sender: FDA-Public Use
  Company Number: IL-NOVOPROD-245559

PATIENT
  Age: 50 Year
  Sex: Female

DRUGS (1)
  1. NOVOSEVEN [Suspect]
     Indication: TRAUMATIC HAEMORRHAGE
     Dosage: 9.6 MG, UNK
     Dates: start: 20050712, end: 20050712

REACTIONS (2)
  - CONCOMITANT DISEASE PROGRESSION [None]
  - PROCEDURAL COMPLICATION [None]
